FAERS Safety Report 18694721 (Version 1)
Quarter: 2020Q4

REPORT INFORMATION
  Report Type: Spontaneous
  Country: US (occurrence: US)
  Receive Date: 20201230
  Receipt Date: 20201230
  Transmission Date: 20210114
  Serious: Yes (Hospitalization)
  Sender: FDA-Public Use
  Company Number: None

PATIENT
  Sex: Female

DRUGS (16)
  1. ACETAMIN [Concomitant]
     Active Substance: ACETAMINOPHEN
  2. REMODULIN [Concomitant]
     Active Substance: TREPROSTINIL
  3. LIDOCAINE. [Concomitant]
     Active Substance: LIDOCAINE
  4. CLOTRIMAZOLE. [Concomitant]
     Active Substance: CLOTRIMAZOLE
  5. DOXYCYC MONO [Concomitant]
     Active Substance: DOXYCYCLINE
  6. FEXOFENADINE [Concomitant]
     Active Substance: FEXOFENADINE HYDROCHLORIDE
  7. HYDROCO/APAP [Concomitant]
     Active Substance: ACETAMINOPHEN\HYDROCODONE
  8. OXCARBAZEPIN [Concomitant]
     Active Substance: OXCARBAZEPINE
  9. OXYCODONE [Concomitant]
     Active Substance: OXYCODONE
  10. ONDANSETRON [Concomitant]
     Active Substance: ONDANSETRON
  11. PLAVIX [Concomitant]
     Active Substance: CLOPIDOGREL BISULFATE
  12. WARFARIN [Concomitant]
     Active Substance: WARFARIN
  13. AMBRISENTAN 10MG TAB [Suspect]
     Active Substance: AMBRISENTAN
     Indication: PULMONARY HYPERTENSION
     Route: 048
     Dates: start: 20190925
  14. CLONAZEPAM. [Concomitant]
     Active Substance: CLONAZEPAM
  15. SILDENAFIL. [Concomitant]
     Active Substance: SILDENAFIL
  16. SPIRONOLACT [Concomitant]
     Active Substance: SPIRONOLACTONE

REACTIONS (1)
  - Product dose omission in error [None]
